FAERS Safety Report 8272460-X (Version None)
Quarter: 2012Q2

REPORT INFORMATION
  Report Type: 
  Country: None (occurrence: None)
  Receive Date: 20120410
  Receipt Date: 20120402
  Transmission Date: 20120825
  Serious: Yes (Hospitalization, Other)
  Sender: FDA-Public Use
  Company Number: US-BAYER-2011-083561

PATIENT
  Age: 29 Year
  Sex: Female
  Weight: 87.075 kg

DRUGS (8)
  1. AZITHROMYCIN [Concomitant]
  2. YAZ [Suspect]
     Indication: CONTRACEPTION
     Dosage: UNK
     Dates: start: 20070101
  3. YASMIN [Suspect]
     Indication: CONTRACEPTION
     Dosage: UNK
     Dates: start: 20051201, end: 20060101
  4. IBUPROFEN [Concomitant]
     Dosage: UNK
     Dates: start: 19930101, end: 20080101
  5. PHENTERMINE [Concomitant]
  6. +#8220;ASTHMA+#8221; [Concomitant]
  7. ZYRTEC-D 12 HOUR [Concomitant]
  8. MULTI-VITAMIN [Concomitant]

REACTIONS (9)
  - INJURY [None]
  - GALLBLADDER DISORDER [None]
  - ABDOMINAL PAIN [None]
  - EMOTIONAL DISTRESS [None]
  - BILIARY DYSKINESIA [None]
  - PAIN [None]
  - CHOLECYSTITIS ACUTE [None]
  - GENERAL PHYSICAL HEALTH DETERIORATION [None]
  - ANXIETY [None]
